FAERS Safety Report 8851855 (Version 1)
Quarter: 2012Q4

REPORT INFORMATION
  Report Type: 
  Country: US (occurrence: US)
  Receive Date: 20121022
  Receipt Date: 20121022
  Transmission Date: 20130627
  Serious: No
  Sender: FDA-Public Use
  Company Number: US-009507513-1210USA007416

PATIENT
  Age: 14 Year
  Sex: Male

DRUGS (4)
  1. SINGULAIR [Suspect]
     Indication: ANAPHYLACTIC REACTION
     Dosage: 10 mg, UNK
     Route: 048
  2. FEXOFENADINE HYDROCHLORIDE [Concomitant]
     Dosage: 180 mg, UNK
  3. CROMOLYN [Concomitant]
     Dosage: 200 mg, UNK
  4. RANITIDINE [Concomitant]
     Dosage: 150 mg, 2 hour before exercise

REACTIONS (1)
  - Drug ineffective [Unknown]
